FAERS Safety Report 5584717-1 (Version None)
Quarter: 2008Q1

REPORT INFORMATION
  Report Type: 
  Country: None (occurrence: None)
  Receive Date: 20080108
  Receipt Date: 20071228
  Transmission Date: 20080703
  Serious: Yes (Other)
  Sender: FDA-Public Use
  Company Number: US-PFIZER INC-2007093547

PATIENT
  Sex: Male
  Weight: 99.09 kg

DRUGS (4)
  1. NORVASC [Suspect]
     Indication: HYPERTENSION
  2. AMLODIPINE [Suspect]
     Indication: HYPERTENSION
     Dosage: DAILY DOSE:10MG-TEXT:10 MG ONCE DAILY
     Route: 048
  3. HYDROCHLOROTHIAZIDE [Concomitant]
     Route: 048
  4. METOPROLOL TARTRATE [Concomitant]
     Route: 048

REACTIONS (5)
  - CEREBROVASCULAR ACCIDENT [None]
  - DIZZINESS [None]
  - NIGHTMARE [None]
  - SCOTOMA [None]
  - VERTIGO [None]
